FAERS Safety Report 25953831 (Version 1)
Quarter: 2025Q4

REPORT INFORMATION
  Report Type: Spontaneous
  Country: US (occurrence: US)
  Receive Date: 20251023
  Receipt Date: 20251023
  Transmission Date: 20260118
  Serious: No
  Sender: DR REDDYS
  Company Number: US-DRL-USA-USA/2025/10/015472

PATIENT

DRUGS (5)
  1. RISPERIDONE [Suspect]
     Active Substance: RISPERIDONE
     Indication: Mental disorder
  2. ZYPREXA [Suspect]
     Active Substance: OLANZAPINE
     Indication: Product used for unknown indication
     Dates: start: 201710
  3. ZYPREXA [Suspect]
     Active Substance: OLANZAPINE
     Dates: start: 201710, end: 202011
  4. LITHIUM [Suspect]
     Active Substance: LITHIUM
     Indication: Mental disorder
  5. QUETIAPINE [Suspect]
     Active Substance: QUETIAPINE
     Indication: Mental disorder

REACTIONS (15)
  - Dehydration [Unknown]
  - Constipation [Unknown]
  - Memory impairment [Unknown]
  - Mobility decreased [Unknown]
  - Sleep disorder [Unknown]
  - Musculoskeletal stiffness [Unknown]
  - Tremor [Unknown]
  - Renal disorder [Unknown]
  - Dyskinesia [Unknown]
  - Speech disorder [Unknown]
  - Dry mouth [Unknown]
  - Dysphagia [Unknown]
  - Coordination abnormal [Unknown]
  - Visual impairment [Unknown]
  - Adverse drug reaction [Unknown]
